FAERS Safety Report 7957054-5 (Version None)
Quarter: 2011Q4

REPORT INFORMATION
  Report Type: 
  Country: None (occurrence: None)
  Receive Date: 20111130
  Receipt Date: 20111124
  Transmission Date: 20120403
  Serious: Yes (Other)
  Sender: FDA-Public Use
  Company Number: GER/UKI/11/0022097

PATIENT
  Age: 83 Year
  Sex: Male
  Weight: 75 kg

DRUGS (13)
  1. PROPRANOLOL [Concomitant]
  2. RAMIPRIL [Concomitant]
  3. VISCOTEARS (CARBOMER) [Concomitant]
  4. NIFEDIPINE [Concomitant]
  5. OMEPRAZOLE [Concomitant]
  6. QVAR [Concomitant]
  7. NAPROXEN [Suspect]
     Indication: PRODUCT USED FOR UNKNOWN INDICATION
     Dosage: UNKNOWN
     Dates: start: 20110929
  8. PRAVASTATIN [Concomitant]
  9. GLIPIZIDE [Concomitant]
  10. DEPO-MEDROL [Concomitant]
  11. MEBEVERINE HYDROCHLORIDE (MEBEVERINE HYDROCHLORIDE) [Concomitant]
  12. METFORMIN HCL [Concomitant]
  13. INDAPAMIDE [Concomitant]

REACTIONS (2)
  - RECTAL HAEMORRHAGE [None]
  - EPISTAXIS [None]
